FAERS Safety Report 8106336-5 (Version None)
Quarter: 2012Q1

REPORT INFORMATION
  Report Type: 
  Country: None (occurrence: None)
  Receive Date: 20120202
  Receipt Date: 20120127
  Transmission Date: 20120608
  Serious: Yes (Hospitalization, Other)
  Sender: FDA-Public Use
  Company Number: US-JNJFOC-20100805540

PATIENT
  Sex: Female

DRUGS (6)
  1. LEVAQUIN [Suspect]
     Indication: PNEUMONIA
     Route: 048
     Dates: start: 20081228, end: 20090106
  2. COUMADIN [Concomitant]
     Route: 065
  3. PREDNISONE TAB [Suspect]
     Indication: PAIN IN EXTREMITY
     Route: 065
  4. LEVAQUIN [Suspect]
     Indication: INFLUENZA
     Route: 048
     Dates: start: 20081228, end: 20090106
  5. PREDNISONE TAB [Suspect]
     Indication: ARTHRALGIA
     Route: 065
  6. PREDNISONE TAB [Suspect]
     Indication: MUSCULOSKELETAL PAIN
     Route: 065

REACTIONS (7)
  - SYNOVITIS [None]
  - JOINT INJURY [None]
  - BURSITIS [None]
  - TENDON RUPTURE [None]
  - ROTATOR CUFF SYNDROME [None]
  - DEPRESSION [None]
  - CARPAL TUNNEL SYNDROME [None]
